FAERS Safety Report 9741802 (Version 1)
Quarter: 2013Q4

REPORT INFORMATION
  Report Type: Report from Study
  Country: US (occurrence: US)
  Receive Date: 20131210
  Receipt Date: 20131210
  Transmission Date: 20140711
  Serious: Yes (Hospitalization, Other)
  Sender: FDA-Public Use
  Company Number: PHHY2013US141082

PATIENT
  Sex: Male

DRUGS (1)
  1. GILENYA [Suspect]
     Indication: MULTIPLE SCLEROSIS
     Dosage: 0.5 MG, QD
     Route: 048
     Dates: start: 20110503, end: 20130321

REACTIONS (12)
  - Pancreatitis [Recovering/Resolving]
  - Cholecystitis [Recovering/Resolving]
  - Abdominal pain [Recovered/Resolved]
  - Vomiting [Recovering/Resolving]
  - Epigastric discomfort [Recovering/Resolving]
  - Nausea [Recovering/Resolving]
  - Isosporiasis [Unknown]
  - Muscular weakness [Recovered/Resolved]
  - Hyperreflexia [Unknown]
  - Movement disorder [Unknown]
  - Hypertonia [Unknown]
  - Dyspnoea [Recovering/Resolving]
